FAERS Safety Report 25391886 (Version 1)
Quarter: 2025Q2

REPORT INFORMATION
  Report Type: Spontaneous
  Country: JP (occurrence: JP)
  Receive Date: 20250603
  Receipt Date: 20250603
  Transmission Date: 20250716
  Serious: Yes (Other)
  Sender: SANOFI AVENTIS
  Company Number: JP-ASTELLAS-2022JP014152AA

PATIENT
  Sex: Female

DRUGS (9)
  1. ZOLPIDEM TARTRATE [Suspect]
     Active Substance: ZOLPIDEM TARTRATE
     Indication: Insomnia
     Dosage: TAKE AT NIGHT
     Route: 048
  2. POLYCARBOPHIL [Suspect]
     Active Substance: POLYCARBOPHIL
     Indication: Irritable bowel syndrome
     Route: 048
  3. LINZESS [Interacting]
     Active Substance: LINACLOTIDE
     Indication: Irritable bowel syndrome
     Route: 048
     Dates: start: 20240228
  4. LINZESS [Interacting]
     Active Substance: LINACLOTIDE
     Dosage: QD
     Route: 048
     Dates: end: 20240226
  5. FERRIC CITRATE ANHYDROUS [Interacting]
     Active Substance: FERRIC CITRATE ANHYDROUS
     Indication: Product used for unknown indication
     Route: 048
     Dates: start: 202107, end: 202401
  6. ELOBIXIBAT [Suspect]
     Active Substance: ELOBIXIBAT
     Indication: Irritable bowel syndrome
     Route: 048
  7. HERBALS [Concomitant]
     Active Substance: HERBALS
     Indication: Irritable bowel syndrome
     Route: 048
  8. CASANTHRANOL\DOCUSATE SODIUM [Concomitant]
     Active Substance: CASANTHRANOL\DOCUSATE SODIUM
     Indication: Irritable bowel syndrome
     Route: 048
  9. DIETARY SUPPLEMENT\PROBIOTICS [Concomitant]
     Active Substance: DIETARY SUPPLEMENT\PROBIOTICS NOS
     Indication: Irritable bowel syndrome
     Route: 048

REACTIONS (9)
  - Uterine cancer [Unknown]
  - Lymphoma [Unknown]
  - Sense of oppression [Unknown]
  - Abdominal pain lower [Unknown]
  - Faecal volume increased [Unknown]
  - Diarrhoea [Unknown]
  - Head discomfort [Unknown]
  - Drug interaction [Unknown]
  - Off label use [Unknown]

NARRATIVE: CASE EVENT DATE: 20240226
